FAERS Safety Report 15881850 (Version 7)
Quarter: 2019Q3

REPORT INFORMATION
  Report Type: Spontaneous
  Country: US (occurrence: US)
  Receive Date: 20190128
  Receipt Date: 20190809
  Transmission Date: 20191004
  Serious: Yes (Hospitalization, Other)
  Sender: FDA-Public Use
  Company Number: US-SA-2019SA021552

PATIENT
  Age: 53 Year
  Sex: Female

DRUGS (1)
  1. KEVZARA [Suspect]
     Active Substance: SARILUMAB
     Dosage: 200 MG, QOW
     Route: 058
     Dates: start: 201812

REACTIONS (7)
  - Upper respiratory tract congestion [Unknown]
  - Blood glucose decreased [Unknown]
  - Respiratory tract infection [Unknown]
  - Paranasal sinus hypersecretion [Unknown]
  - Condition aggravated [Unknown]
  - Influenza like illness [Unknown]
  - Pain in extremity [Unknown]

NARRATIVE: CASE EVENT DATE: 201906
